FAERS Safety Report 7542602-X (Version None)
Quarter: 2011Q2

REPORT INFORMATION
  Report Type: 
  Country: None (occurrence: None)
  Receive Date: 20110524
  Receipt Date: 20110221
  Transmission Date: 20111010
  Serious: No
  Sender: FDA-Public Use
  Company Number: 018141

PATIENT
  Sex: Female
  Weight: 57 kg

DRUGS (13)
  1. XANAX [Concomitant]
  2. CYMBALTA [Concomitant]
  3. WELLBUTRIN [Concomitant]
  4. PROTONIX [Concomitant]
  5. CIMZIA [Suspect]
     Indication: CROHN'S DISEASE
     Dosage: (400 MG SUBCUTANEOUS)
     Route: 058
     Dates: start: 20100623
  6. CIMZIA [Suspect]
     Indication: POLYARTHRITIS
     Dosage: (400 MG SUBCUTANEOUS)
     Route: 058
     Dates: start: 20100623
  7. CIMZIA [Suspect]
     Indication: OSTEOARTHRITIS
     Dosage: (400 MG SUBCUTANEOUS)
     Route: 058
     Dates: start: 20100623
  8. RESTASIS [Concomitant]
  9. LIBRAX [Concomitant]
  10. ROBAXIN [Concomitant]
  11. DARVOCET [Concomitant]
  12. BONIVA [Concomitant]
  13. TRAMADOL HCL [Concomitant]

REACTIONS (10)
  - ARTHRALGIA [None]
  - ECZEMA [None]
  - NAUSEA [None]
  - HEADACHE [None]
  - ABDOMINAL DISTENSION [None]
  - FATIGUE [None]
  - DECREASED APPETITE [None]
  - PYREXIA [None]
  - CONSTIPATION [None]
  - DRUG INEFFECTIVE [None]
